FAERS Safety Report 4415227-2 (Version None)
Quarter: 2004Q3

REPORT INFORMATION
  Report Type: 
  Country: None (occurrence: None)
  Receive Date: 20040804
  Receipt Date: 20040729
  Transmission Date: 20050211
  Serious: Yes (Hospitalization)
  Sender: FDA-Public Use
  Company Number: JPKYO-S-20040026

PATIENT
  Age: 61 Year
  Sex: Female

DRUGS (14)
  1. NAVELBINE [Suspect]
     Indication: BREAST CANCER METASTATIC
     Dosage: 25MGMM CYCLIC
     Route: 042
     Dates: start: 20040315, end: 20040329
  2. HERCEPTIN [Suspect]
     Indication: BREAST CANCER METASTATIC
     Route: 042
     Dates: start: 20040315, end: 20040329
  3. PRAVASTATIN [Concomitant]
     Dates: end: 20040328
  4. ZYRTEC [Concomitant]
     Dates: end: 20040315
  5. POLARAMINE [Concomitant]
     Dates: end: 20040328
  6. HYALEIN [Concomitant]
     Dates: end: 20040328
  7. LIVOSTIN [Concomitant]
     Dates: end: 20040328
  8. EBASTEL [Concomitant]
     Dates: start: 20040316, end: 20040328
  9. HIRUDOID [Concomitant]
     Dates: end: 20040328
  10. VOLTAREN [Concomitant]
     Dates: start: 20040316, end: 20040316
  11. ALOSENN [Concomitant]
     Dates: start: 20040317, end: 20040318
  12. RINDERON VG [Concomitant]
     Dates: start: 20040318, end: 20040323
  13. LOXONIN [Concomitant]
     Dates: start: 20030323, end: 20040323
  14. ATARAX [Concomitant]
     Dates: start: 20040323, end: 20040423

REACTIONS (7)
  - ANXIETY [None]
  - CONFUSIONAL STATE [None]
  - MANIA [None]
  - MENTAL DISORDER [None]
  - PERSECUTORY DELUSION [None]
  - RESTLESSNESS [None]
  - THINKING ABNORMAL [None]
